FAERS Safety Report 13043783 (Version 1)
Quarter: 2016Q4

REPORT INFORMATION
  Report Type: Report from Study
  Country: US (occurrence: US)
  Receive Date: 20161220
  Receipt Date: 20161220
  Transmission Date: 20170207
  Serious: Yes (Other)
  Sender: FDA-Public Use
  Company Number: US-AMGEN-USASL2016178414

PATIENT
  Sex: Female

DRUGS (1)
  1. ENBREL [Suspect]
     Active Substance: ETANERCEPT
     Indication: RHEUMATOID ARTHRITIS
     Dosage: 50 MG, WEEKLY
     Route: 065

REACTIONS (10)
  - Angina pectoris [Unknown]
  - Vasospasm [Unknown]
  - Cardiac murmur [Unknown]
  - Pain [Recovered/Resolved]
  - Right ventricular hypertrophy [Unknown]
  - Blood pressure increased [Unknown]
  - Pulmonary valve disease [Unknown]
  - Catheterisation cardiac [Unknown]
  - Muscle disorder [Unknown]
  - Mitral valve disease [Unknown]
